FAERS Safety Report 5466702-3 (Version None)
Quarter: 2007Q3

REPORT INFORMATION
  Report Type: 
  Country: None (occurrence: None)
  Receive Date: 20070920
  Receipt Date: 20070828
  Transmission Date: 20080115
  Serious: Yes (Other)
  Sender: FDA-Public Use
  Company Number: 6036773

PATIENT
  Age: 49 Year
  Sex: Male

DRUGS (2)
  1. METFORMIN HCL [Suspect]
     Indication: TYPE 2 DIABETES MELLITUS
     Dosage: 3000 MG (1000 MG, 3 IN 1 D); ORAL
     Route: 048
     Dates: start: 20060501, end: 20070701
  2. IRBESARTAN [Concomitant]

REACTIONS (2)
  - HEPATITIS [None]
  - METASTASES TO LIVER [None]
